FAERS Safety Report 7299170-X (Version None)
Quarter: 2011Q1

REPORT INFORMATION
  Report Type: 
  Country: None (occurrence: None)
  Receive Date: 20110217
  Receipt Date: 20110211
  Transmission Date: 20110831
  Serious: Yes (Other)
  Sender: FDA-Public Use
  Company Number: AR-JNJFOC-20110205300

PATIENT
  Sex: Female

DRUGS (1)
  1. IBUPIRAC 4% [Suspect]
     Indication: PYREXIA
     Route: 048

REACTIONS (2)
  - BODY TEMPERATURE DECREASED [None]
  - UNRESPONSIVE TO STIMULI [None]
